FAERS Safety Report 14299801 (Version 1)
Quarter: 2017Q4

REPORT INFORMATION
  Report Type: Report from Study
  Country: NL (occurrence: NL)
  Receive Date: 20171219
  Receipt Date: 20171219
  Transmission Date: 20180321
  Serious: Yes (Hospitalization)
  Sender: FDA-Public Use
  Company Number: NL-AMGEN-NLDSL2017186607

PATIENT
  Age: 89 Year
  Sex: Male

DRUGS (1)
  1. ARANESP [Suspect]
     Active Substance: DARBEPOETIN ALFA
     Indication: MYELODYSPLASTIC SYNDROME
     Dosage: 40MUG (100MUG/ML, 0.4ML), Q2WK
     Route: 058

REACTIONS (1)
  - Fall [Unknown]

NARRATIVE: CASE EVENT DATE: 20171207
